FAERS Safety Report 9459879 (Version 3)
Quarter: 2013Q4

REPORT INFORMATION
  Report Type: Spontaneous
  Country: US (occurrence: US)
  Receive Date: 20130815
  Receipt Date: 20131010
  Transmission Date: 20140711
  Serious: Yes (Other)
  Sender: FDA-Public Use
  Company Number: US-PFIZER INC-2013231875

PATIENT
  Age: 54 Year
  Sex: Female

DRUGS (2)
  1. REVATIO [Suspect]
     Dosage: UNK
  2. LETAIRIS [Suspect]
     Indication: PULMONARY ARTERIAL HYPERTENSION
     Dosage: 5 MG, 1X/DAY (QD)
     Route: 048
     Dates: start: 20121026

REACTIONS (3)
  - Lung disorder [Unknown]
  - Interstitial lung disease [Unknown]
  - Oedema [Unknown]
